FAERS Safety Report 7222019-8 (Version None)
Quarter: 2011Q1

REPORT INFORMATION
  Report Type: 
  Country: None (occurrence: None)
  Receive Date: 20110112
  Receipt Date: 20110103
  Transmission Date: 20110831
  Serious: Yes (Hospitalization, Other)
  Sender: FDA-Public Use
  Company Number: FR-ELI_LILLY_AND_COMPANY-FR201101000018

PATIENT
  Sex: Male

DRUGS (4)
  1. ELOXATIN [Concomitant]
     Dosage: 85 MG/M2, UNKNOWN
     Route: 042
     Dates: start: 20091117, end: 20100526
  2. GEMZAR [Suspect]
     Dosage: 1000 MG/M2, UNKNOWN
     Route: 042
     Dates: start: 20101018
  3. GEMZAR [Suspect]
     Dosage: 1000 MG/M2, UNKNOWN
     Route: 042
     Dates: start: 20091117, end: 20100526
  4. ELOXATIN [Concomitant]
     Dosage: 85 MG/M2, UNK
     Route: 042
     Dates: start: 20101018

REACTIONS (5)
  - PYREXIA [None]
  - BACK PAIN [None]
  - JAUNDICE [None]
  - DIZZINESS [None]
  - HAEMOLYTIC URAEMIC SYNDROME [None]
